FAERS Safety Report 7218103-5 (Version None)
Quarter: 2011Q1

REPORT INFORMATION
  Report Type: 
  Country: None (occurrence: None)
  Receive Date: 20110110
  Receipt Date: 20110106
  Transmission Date: 20110831
  Serious: Yes (Other)
  Sender: FDA-Public Use
  Company Number: FR-MERCK-1101FRA00021

PATIENT
  Age: 67 Year
  Sex: Female

DRUGS (8)
  1. LOPERAMIDE HYDROCHLORIDE [Suspect]
     Route: 048
     Dates: start: 20100901
  2. CHLORHEXIDINE GLUCONATE AND CHLOROBUTANOL [Suspect]
     Route: 048
     Dates: start: 20100901
  3. LEVOTHYROXINE SODIUM [Suspect]
     Route: 048
  4. ESOMEPRAZOLE MAGNESIUM [Suspect]
     Route: 048
     Dates: start: 20100901
  5. GLYCERIN AND MINERAL OIL AND PETROLATUM, WHITE [Suspect]
     Route: 061
     Dates: start: 20100901
  6. LORATADINE [Suspect]
     Indication: RASH
     Route: 048
     Dates: start: 20100929
  7. FOSAMAX [Suspect]
     Route: 048
  8. EVEROLIMUS [Suspect]
     Route: 048
     Dates: start: 20100801, end: 20101125

REACTIONS (3)
  - PYREXIA [None]
  - LUNG DISORDER [None]
  - COUGH [None]
